FAERS Safety Report 19587915 (Version 2)
Quarter: 2021Q3

REPORT INFORMATION
  Report Type: Report from Study
  Country: US (occurrence: US)
  Receive Date: 20210721
  Receipt Date: 20210727
  Transmission Date: 20211014
  Serious: Yes (Hospitalization, Other)
  Sender: FDA-Public Use
  Company Number: US-BRISTOL-MYERS SQUIBB COMPANY-BMS-2021-066740

PATIENT
  Age: 74 Year
  Sex: Male
  Weight: 67.3 kg

DRUGS (2)
  1. IPILIMUMAB [Suspect]
     Active Substance: IPILIMUMAB
     Indication: COLORECTAL ADENOCARCINOMA
     Dosage: 200 MILLIGRAM/VIAL, Q6WK
     Route: 042
     Dates: start: 20210601
  2. NIVOLUMAB [Suspect]
     Active Substance: NIVOLUMAB
     Indication: COLORECTAL ADENOCARCINOMA
     Dosage: 10 MILLIGRAM/VIAL, Q2WK
     Route: 042
     Dates: start: 20210601

REACTIONS (4)
  - Pulmonary embolism [Unknown]
  - Intestinal obstruction [Unknown]
  - Pneumonia [Unknown]
  - Kidney infection [Unknown]

NARRATIVE: CASE EVENT DATE: 20210704
